FAERS Safety Report 7457243-2 (Version None)
Quarter: 2011Q2

REPORT INFORMATION
  Report Type: 
  Country: None (occurrence: None)
  Receive Date: 20110504
  Receipt Date: 20110422
  Transmission Date: 20111010
  Serious: Yes (Other)
  Sender: FDA-Public Use
  Company Number: US-MYLANLABS-2011S1008396

PATIENT
  Sex: Female

DRUGS (1)
  1. AMNESTEEM [Suspect]

REACTIONS (2)
  - JOINT INJURY [None]
  - PULMONARY EMBOLISM [None]
